FAERS Safety Report 4731416-1 (Version None)
Quarter: 2005Q3

REPORT INFORMATION
  Report Type: 
  Country: None (occurrence: None)
  Receive Date: 20050719
  Receipt Date: 20040528
  Transmission Date: 20060218
  Serious: Yes (Hospitalization)
  Sender: FDA-Public Use
  Company Number: 198986

PATIENT
  Age: 52 Year
  Sex: Male
  Weight: 70.7611 kg

DRUGS (7)
  1. AVONEX [Suspect]
     Indication: MULTIPLE SCLEROSIS
     Dosage: 30 UG;QW;IM
     Route: 030
     Dates: start: 20040520
  2. SYNTHROID [Concomitant]
  3. BACLOFEN [Concomitant]
  4. CLARINEX [Concomitant]
  5. ARICEPT [Concomitant]
  6. ASPIRIN [Concomitant]
  7. CELEXA [Concomitant]

REACTIONS (3)
  - DEPRESSION [None]
  - FATIGUE [None]
  - MULTIPLE SCLEROSIS RELAPSE [None]
